FAERS Safety Report 23346986 (Version 1)
Quarter: 2023Q4

REPORT INFORMATION
  Report Type: Spontaneous
  Country: US (occurrence: US)
  Receive Date: 20231228
  Receipt Date: 20231228
  Transmission Date: 20240109
  Serious: Yes (Hospitalization)
  Sender: FDA-Public Use
  Company Number: US-MYLANLABS-2023M1138056

PATIENT
  Age: 20 Month
  Sex: Female

DRUGS (2)
  1. DEXAMETHASONE [Suspect]
     Active Substance: DEXAMETHASONE
     Indication: COVID-19
     Dosage: 0.6 MILLIGRAM/KILOGRAM, SINGLE DOSE
     Route: 065
     Dates: start: 20220112, end: 20220112
  2. VARIVAX [Suspect]
     Active Substance: VARICELLA-ZOSTER VIRUS STRAIN OKA/MERCK LIVE ANTIGEN
     Indication: Varicella immunisation
     Dosage: UNK
     Route: 065
     Dates: start: 20210610, end: 20210610

REACTIONS (3)
  - Herpes zoster reactivation [Recovered/Resolved]
  - Varicella post vaccine [Recovered/Resolved]
  - Off label use [Unknown]

NARRATIVE: CASE EVENT DATE: 20220112
